FAERS Safety Report 5038804-7 (Version None)
Quarter: 2006Q2

REPORT INFORMATION
  Report Type: 
  Country: None (occurrence: None)
  Receive Date: 20060626
  Receipt Date: 20060626
  Transmission Date: 20061013
  Serious: No
  Sender: FDA-Public Use
  Company Number: None

PATIENT
  Age: 65 Year
  Sex: Male
  Weight: 105.2345 kg

DRUGS (10)
  1. NOVOLOG [Suspect]
     Indication: DIABETES MELLITUS
     Dosage: 4 UNITS SQ BID
     Route: 048
     Dates: start: 20060501
  2. LANTUS [Concomitant]
  3. LIPITOR [Concomitant]
  4. COREG [Concomitant]
  5. HYDROCHLOROTHIAZIDE [Concomitant]
  6. LISINOPRIL [Concomitant]
  7. AMARYL [Concomitant]
  8. NORVASC [Concomitant]
  9. CUPRIMINE [Concomitant]
  10. MV [Concomitant]

REACTIONS (3)
  - BLOOD GLUCOSE INCREASED [None]
  - DIZZINESS [None]
  - HEADACHE [None]
